FAERS Safety Report 8005829-9 (Version None)
Quarter: 2011Q4

REPORT INFORMATION
  Report Type: 
  Country: None (occurrence: None)
  Receive Date: 20111223
  Receipt Date: 20111216
  Transmission Date: 20120403
  Serious: Yes (Hospitalization)
  Sender: FDA-Public Use
  Company Number: IN-ELI_LILLY_AND_COMPANY-IN201111001226

PATIENT
  Age: 55 Year
  Sex: Female

DRUGS (2)
  1. HUMALOG MIX 50/50 [Suspect]
     Indication: DIABETES MELLITUS
     Dosage: 40 U, EACH MORNING
     Dates: start: 20100101
  2. HUMALOG MIX 50/50 [Suspect]
     Dosage: UNK, UNKNOWN
     Dates: start: 20110101

REACTIONS (5)
  - BRONCHITIS [None]
  - LOSS OF CONSCIOUSNESS [None]
  - PNEUMONITIS [None]
  - PYREXIA [None]
  - BLOOD GLUCOSE INCREASED [None]
